FAERS Safety Report 7591861-6 (Version None)
Quarter: 2011Q3

REPORT INFORMATION
  Report Type: 
  Country: None (occurrence: None)
  Receive Date: 20110701
  Receipt Date: 20110701
  Transmission Date: 20111222
  Serious: Yes (Other)
  Sender: FDA-Public Use
  Company Number: None

PATIENT
  Sex: Female
  Weight: 90.7194 kg

DRUGS (1)
  1. CHANTIX [Suspect]

REACTIONS (4)
  - PHARYNGEAL OEDEMA [None]
  - NIGHTMARE [None]
  - MALAISE [None]
  - VOMITING [None]
